FAERS Safety Report 4951270-2 (Version None)
Quarter: 2006Q1

REPORT INFORMATION
  Report Type: 
  Country: None (occurrence: None)
  Receive Date: 20060323
  Receipt Date: 20060314
  Transmission Date: 20060701
  Serious: Yes (Hospitalization)
  Sender: FDA-Public Use
  Company Number: FR-JNJFOC-20060304055

PATIENT
  Age: 31 Year
  Sex: Male

DRUGS (4)
  1. INFLIXIMAB [Suspect]
     Indication: ANKYLOSING SPONDYLITIS
     Route: 042
  2. ACETAMINOPHEN [Concomitant]
     Indication: ANKYLOSING SPONDYLITIS
  3. FELDENE [Concomitant]
     Indication: ANKYLOSING SPONDYLITIS
  4. NOVATREX [Concomitant]
     Indication: ANKYLOSING SPONDYLITIS

REACTIONS (5)
  - CHILLS [None]
  - FEELING COLD [None]
  - HYPERTENSION [None]
  - INFUSION RELATED REACTION [None]
  - TREMOR [None]
